FAERS Safety Report 8376099-7 (Version None)
Quarter: 2012Q2

REPORT INFORMATION
  Report Type: 
  Country: None (occurrence: None)
  Receive Date: 20120522
  Receipt Date: 20120514
  Transmission Date: 20120825
  Serious: Yes (Hospitalization)
  Sender: FDA-Public Use
  Company Number: US-BAYER-2012-018258

PATIENT
  Age: 32 Year
  Sex: Female
  Weight: 136.51 kg

DRUGS (9)
  1. OMEPRAZOLE [Concomitant]
  2. PEPCID AC [Concomitant]
     Indication: GASTROOESOPHAGEAL REFLUX DISEASE
  3. LORAZEPAM [Concomitant]
  4. MECLIZINE [Concomitant]
  5. ALPRAZOLAM [Concomitant]
  6. ERYTHROMYCIN [Concomitant]
  7. PREVACID [Concomitant]
     Indication: GASTROOESOPHAGEAL REFLUX DISEASE
     Dosage: UNK
     Dates: start: 20100101
  8. YAZ [Suspect]
     Indication: CONTRACEPTION
     Dosage: UNK
     Dates: start: 20070806, end: 20100101
  9. SUCRALFATE [Concomitant]

REACTIONS (3)
  - PAIN [None]
  - CHOLECYSTITIS CHRONIC [None]
  - GALLBLADDER DISORDER [None]
